FAERS Safety Report 6940872-X (Version None)
Quarter: 2010Q3

REPORT INFORMATION
  Report Type: 
  Country: None (occurrence: None)
  Receive Date: 20100825
  Receipt Date: 20100823
  Transmission Date: 20110219
  Serious: Yes (Other)
  Sender: FDA-Public Use
  Company Number: DE-MERCK-1008DEU00067

PATIENT
  Age: 76 Year
  Sex: Female

DRUGS (3)
  1. TRUSOPT [Suspect]
     Indication: GLAUCOMA
     Route: 047
     Dates: start: 20100401
  2. LATANOPROST [Concomitant]
     Route: 065
  3. ETORICOXIB [Concomitant]
     Route: 048

REACTIONS (5)
  - DEAFNESS UNILATERAL [None]
  - DRY MOUTH [None]
  - EYE IRRITATION [None]
  - PRURITUS [None]
  - URTICARIA [None]
